FAERS Safety Report 20848867 (Version 2)
Quarter: 2022Q2

REPORT INFORMATION
  Report Type: Spontaneous
  Country: US (occurrence: US)
  Receive Date: 20220519
  Receipt Date: 20220627
  Transmission Date: 20220721
  Serious: No
  Sender: FDA-Public Use
  Company Number: US-PFIZER INC-202200597445

PATIENT
  Age: 66 Year
  Sex: Male
  Weight: 89.04 kg

DRUGS (2)
  1. TESTOSTERONE [Suspect]
     Active Substance: TESTOSTERONE
     Indication: Blood testosterone decreased
     Dosage: 1 ML
  2. TESTOSTERONE [Suspect]
     Active Substance: TESTOSTERONE
     Indication: Hypogonadism
     Dosage: 0.5 ML, WEEKLY
     Route: 030

REACTIONS (4)
  - Malaise [Unknown]
  - Pain [Unknown]
  - Dizziness [Unknown]
  - Off label use [Unknown]
